FAERS Safety Report 13188012 (Version 1)
Quarter: 2017Q1

REPORT INFORMATION
  Report Type: Report from Study
  Country: US (occurrence: US)
  Receive Date: 20170206
  Receipt Date: 20170206
  Transmission Date: 20170428
  Serious: Yes (Hospitalization)
  Sender: FDA-Public Use
  Company Number: US-BAYER-2016-226979

PATIENT
  Age: 52 Year
  Sex: Male

DRUGS (4)
  1. NEXAVAR [Suspect]
     Active Substance: SORAFENIB
     Indication: HEPATOCELLULAR CARCINOMA
     Dosage: 400 MG, BID
     Route: 048
     Dates: start: 20161112, end: 20161114
  2. NEXAVAR [Suspect]
     Active Substance: SORAFENIB
     Indication: HEPATOCELLULAR CARCINOMA
     Dosage: 200 MG, BID
     Route: 048
     Dates: start: 20161115, end: 201701
  3. PEMBROLIZUMAB. [Concomitant]
     Active Substance: PEMBROLIZUMAB
  4. NEXAVAR [Suspect]
     Active Substance: SORAFENIB
     Indication: HEPATOCELLULAR CARCINOMA
     Dosage: 200 MG, BID
     Route: 048
     Dates: start: 201701

REACTIONS (14)
  - Erythema [Recovering/Resolving]
  - Pruritus [Recovering/Resolving]
  - Hypotension [None]
  - Dyspnoea [None]
  - Fatigue [None]
  - Cough [None]
  - Myalgia [None]
  - Joint stiffness [Not Recovered/Not Resolved]
  - Increased upper airway secretion [None]
  - Arthralgia [None]
  - Fatigue [None]
  - Diarrhoea [None]
  - Dry skin [None]
  - Blood potassium decreased [None]

NARRATIVE: CASE EVENT DATE: 2016
